FAERS Safety Report 9475693 (Version 2)
Quarter: 2013Q3

REPORT INFORMATION
  Report Type: Report from Study
  Country: AU (occurrence: AU)
  Receive Date: 20130826
  Receipt Date: 20130826
  Transmission Date: 20140515
  Serious: Yes (Other)
  Sender: FDA-Public Use
  Company Number: PHHY2013AU086038

PATIENT
  Age: 76 Year
  Sex: Female

DRUGS (5)
  1. ACLASTA [Suspect]
     Indication: OSTEOPOROSIS
     Dosage: 5 MG
     Route: 042
     Dates: start: 20120703
  2. METHOTREXATE [Concomitant]
     Indication: TENOSYNOVITIS
     Dosage: 20 MG, WEEKLY
     Route: 048
  3. PREDNISOLONE [Concomitant]
     Indication: TENOSYNOVITIS
     Dosage: 2.5 MG, UNK
     Route: 048
  4. OSTELIN [Concomitant]
     Indication: OSTEOPOROSIS
     Dosage: 2000 IU, QD
     Route: 048
  5. MOBIC [Concomitant]
     Indication: PAIN
     Dosage: 15 MG, QD
     Route: 048

REACTIONS (1)
  - Adverse drug reaction [Recovered/Resolved]
